FAERS Safety Report 23231102 (Version 1)
Quarter: 2023Q4

REPORT INFORMATION
  Report Type: Spontaneous
  Country: SI (occurrence: SI)
  Receive Date: 20231127
  Receipt Date: 20231127
  Transmission Date: 20240110
  Serious: Yes (Other)
  Sender: FDA-Public Use
  Company Number: SI-SUN PHARMACEUTICAL INDUSTRIES LTD-2023R1-420341

PATIENT
  Age: 24 Year
  Sex: Male

DRUGS (4)
  1. ASPIRIN [Suspect]
     Active Substance: ASPIRIN
     Indication: Antiplatelet therapy
     Dosage: 100 MILLIGRAM
     Route: 065
  2. CLOPIDOGREL [Suspect]
     Active Substance: CLOPIDOGREL BISULFATE
     Indication: Antiplatelet therapy
     Dosage: 75 MILLIGRAM
     Route: 065
  3. epnephrine [Concomitant]
     Indication: Rash
     Dosage: UNK
     Route: 065
  4. PREDNISOLONE [Concomitant]
     Active Substance: PREDNISOLONE
     Indication: Rash
     Dosage: 1 MILLIGRAM/KILOGRAM, DAILY
     Route: 042

REACTIONS (1)
  - Cutaneous vasculitis [Unknown]
